FAERS Safety Report 7214994-2 (Version None)
Quarter: 2011Q1

REPORT INFORMATION
  Report Type: 
  Country: None (occurrence: None)
  Receive Date: 20110107
  Receipt Date: 20100617
  Transmission Date: 20110831
  Serious: No
  Sender: FDA-Public Use
  Company Number: A0867847A

PATIENT
  Age: 76 Year
  Sex: Female

DRUGS (3)
  1. LIPITOR [Suspect]
     Route: 048
  2. BONIVA [Suspect]
  3. LOVAZA [Suspect]
     Route: 048

REACTIONS (2)
  - MYALGIA [None]
  - MUSCULAR WEAKNESS [None]
